FAERS Safety Report 17749967 (Version 3)
Quarter: 2021Q2

REPORT INFORMATION
  Report Type: Spontaneous
  Country: US (occurrence: US)
  Receive Date: 20200506
  Receipt Date: 20210517
  Transmission Date: 20210716
  Serious: Yes (Other)
  Sender: FDA-Public Use
  Company Number: US-PERRIGO-20US006100

PATIENT
  Sex: Male

DRUGS (5)
  1. PROTONIX                           /00661201/ [Suspect]
     Active Substance: OMEPRAZOLE
     Indication: PRODUCT USED FOR UNKNOWN INDICATION
     Dosage: UNK, UNK
     Route: 048
     Dates: start: 199201, end: 201812
  2. NEXIUM [Suspect]
     Active Substance: ESOMEPRAZOLE MAGNESIUM
     Indication: PRODUCT USED FOR UNKNOWN INDICATION
     Dosage: UNK, UNK
     Route: 048
     Dates: start: 199201, end: 201812
  3. PREVACID 24 HR [Suspect]
     Active Substance: LANSOPRAZOLE
     Indication: PRODUCT USED FOR UNKNOWN INDICATION
     Dosage: UNK, UNK
     Route: 048
     Dates: start: 200905, end: 201812
  4. PREVACID [Suspect]
     Active Substance: LANSOPRAZOLE
     Indication: PRODUCT USED FOR UNKNOWN INDICATION
     Dosage: UNK, UNK
     Route: 048
     Dates: start: 199201, end: 201812
  5. PRILOSEC [Suspect]
     Active Substance: OMEPRAZOLE MAGNESIUM
     Indication: PRODUCT USED FOR UNKNOWN INDICATION
     Dosage: UNK, UNK
     Route: 048
     Dates: start: 199201, end: 201812

REACTIONS (18)
  - Chronic kidney disease [Unknown]
  - Nephrogenic anaemia [Unknown]
  - Peritoneal dialysis [Unknown]
  - Dialysis [Unknown]
  - Urinary tract disorder [Unknown]
  - End stage renal disease [Unknown]
  - Bacteraemia [Unknown]
  - Acquired cystic kidney disease [Unknown]
  - Haematuria [Unknown]
  - Acute kidney injury [Unknown]
  - Renal hypertension [Unknown]
  - Haemodialysis [Unknown]
  - Condition aggravated [Unknown]
  - Renal failure [Unknown]
  - Renal impairment [Unknown]
  - Oliguria [Unknown]
  - Renal cyst [Unknown]
  - Renal atrophy [Unknown]
